FAERS Safety Report 8976268 (Version 1)
Quarter: 2012Q4

REPORT INFORMATION
  Report Type: 
  Country: US (occurrence: US)
  Receive Date: 20121220
  Receipt Date: 20121220
  Transmission Date: 20130627
  Serious: No
  Sender: FDA-Public Use
  Company Number: US-009507513-1212USA007964

PATIENT
  Sex: Male

DRUGS (2)
  1. RIBAVIRIN [Suspect]
     Indication: HEPATITIS C
     Dosage: UNK
     Dates: start: 20030101
  2. [THERAPY UNSPECIFIED] [Suspect]
     Indication: HEPATITIS C
     Dosage: UNK
     Dates: start: 20030101

REACTIONS (1)
  - Drug ineffective [Unknown]
